FAERS Safety Report 4828632-7 (Version None)
Quarter: 2005Q4

REPORT INFORMATION
  Report Type: 
  Country: None (occurrence: None)
  Receive Date: 20051115
  Receipt Date: 20051027
  Transmission Date: 20060501
  Serious: Yes (Hospitalization)
  Sender: FDA-Public Use
  Company Number: PHBS2005BR16059

PATIENT
  Age: 59 Year
  Sex: 0

DRUGS (4)
  1. PARLODEL [Suspect]
     Dosage: UNK, UNK
     Dates: start: 20021014
  2. HIDANTAL [Suspect]
     Dosage: 300 MG/DAY
  3. METICORTEN [Concomitant]
  4. LEVOTHYROXINE SODIUM [Concomitant]

REACTIONS (5)
  - BLOOD PROLACTIN INCREASED [None]
  - CONVULSION [None]
  - DRUG INTERACTION [None]
  - PROLACTINOMA [None]
  - TREATMENT NONCOMPLIANCE [None]
